FAERS Safety Report 9718979 (Version 4)
Quarter: 2014Q1

REPORT INFORMATION
  Report Type: Report from Study
  Country: US (occurrence: US)
  Receive Date: 20131127
  Receipt Date: 20140328
  Transmission Date: 20141002
  Serious: Yes (Hospitalization)
  Sender: FDA-Public Use
  Company Number: US-BRISTOL-MYERS SQUIBB COMPANY-19831809

PATIENT
  Age: 47 Year
  Sex: Male
  Weight: 94.9 kg

DRUGS (9)
  1. NIVOLUMAB [Suspect]
     Indication: METASTATIC MALIGNANT MELANOMA
     Dosage: 21MAY13-30JUL13?MAINTENANCE PHASE: 05NOV13:3MG/KG:Q2WEEKS
     Route: 042
     Dates: start: 20130521
  2. IPILIMUMAB [Suspect]
     Indication: METASTATIC MALIGNANT MELANOMA
     Dosage: LAST DOSE ON 15-OCT-2013
     Route: 042
     Dates: start: 20130813
  3. FLUOCINONIDE [Concomitant]
     Dosage: 1DF: 1APP
     Dates: start: 2009
  4. VITAMIN D3 [Concomitant]
     Dates: start: 20131029
  5. FISH OIL [Concomitant]
     Dates: start: 20120921
  6. PERCOCET [Concomitant]
  7. CIPRO [Concomitant]
  8. METRONIDAZOLE [Concomitant]
  9. HYDROCORTISONE [Concomitant]

REACTIONS (1)
  - Appendicitis [Recovered/Resolved]
